FAERS Safety Report 14755329 (Version 4)
Quarter: 2018Q2

REPORT INFORMATION
  Report Type: Report from Study
  Country: FR (occurrence: FR)
  Receive Date: 20180413
  Receipt Date: 20180604
  Transmission Date: 20180711
  Serious: Yes (Life-Threatening)
  Sender: FDA-Public Use
  Company Number: FR-ROCHE-2106028

PATIENT
  Age: 67 Year
  Sex: Female

DRUGS (14)
  1. ZOPHREN [Concomitant]
     Active Substance: ONDANSETRON
  2. BEVACIZUMAB. [Suspect]
     Active Substance: BEVACIZUMAB
     Indication: OVARIAN CANCER
     Dosage: INDUCTION TREATMENT ON DAY 1 AND DAY 15?DATE OF MOST RECENT DOSE PRIOR TO EVENT ONSET ON 29/MAR/2018
     Route: 042
     Dates: start: 20180315
  3. CAELYX [Suspect]
     Active Substance: DOXORUBICIN HYDROCHLORIDE
     Indication: OVARIAN CANCER
     Dosage: ON DAY 1?DATE OF MOST RECENT DOSE PRIOR TO EVENT ONSET ON 15/MAR/2018
     Route: 042
     Dates: start: 20180315
  4. LEVOTHYROX [Concomitant]
     Active Substance: LEVOTHYROXINE
  5. EMEND [Concomitant]
     Active Substance: APREPITANT
  6. AMLOR [Concomitant]
     Active Substance: AMLODIPINE BESYLATE
     Route: 065
  7. ATEZOLIZUMAB. [Suspect]
     Active Substance: ATEZOLIZUMAB
     Indication: OVARIAN CANCER
     Dosage: INDUCTION TREATMENT ON DAY 1 AND DAY 15 FOR 6 CYCLES?DATE OF MOST RECENT DOSE PRIOR TO EVENT ON 29/M
     Route: 042
     Dates: start: 20180315
  8. VENLAFAXINE [Concomitant]
     Active Substance: VENLAFAXINE HYDROCHLORIDE
  9. DOLIPRANE [Concomitant]
     Active Substance: ACETAMINOPHEN
  10. ATEZOLIZUMAB. [Suspect]
     Active Substance: ATEZOLIZUMAB
     Dosage: MAINTAINANCE TREATMENT ON DAY 1
     Route: 042
     Dates: start: 20180315
  11. BEVACIZUMAB. [Suspect]
     Active Substance: BEVACIZUMAB
     Dosage: MAINTAINANCE TREATMENT ON DAY 1
     Route: 042
     Dates: start: 20180315
  12. BICARBONATE (SODIUM BICARBONATE) [Concomitant]
     Active Substance: SODIUM BICARBONATE
  13. CARBOPLATIN. [Suspect]
     Active Substance: CARBOPLATIN
     Indication: OVARIAN CANCER
     Dosage: AREA UNDER THE CONCENTRATION CURVE (AUC) 5 ON DAY 01?DATE OF MOST RECENT DOSE PRIOR TO EVENT ONSET O
     Route: 042
     Dates: start: 20180315
  14. PRIMPERAN [Concomitant]
     Active Substance: METOCLOPRAMIDE HYDROCHLORIDE

REACTIONS (2)
  - Thrombocytopenia [Recovered/Resolved]
  - Neutropenia [Recovered/Resolved]

NARRATIVE: CASE EVENT DATE: 20180330
